FAERS Safety Report 14893586 (Version 1)
Quarter: 2018Q2

REPORT INFORMATION
  Report Type: Spontaneous
  Country: CA (occurrence: CA)
  Receive Date: 20180514
  Receipt Date: 20180514
  Transmission Date: 20180711
  Serious: Yes (Other)
  Sender: FDA-Public Use
  Company Number: CA-SHIRE-CA201818193

PATIENT

DRUGS (3)
  1. MEZAVANT [Suspect]
     Active Substance: MESALAMINE
     Dosage: 1 G, 1X/DAY:QD
     Route: 054
  2. MEZAVANT [Suspect]
     Active Substance: MESALAMINE
     Dosage: 2 G, UNK
     Route: 048
  3. MEZAVANT [Suspect]
     Active Substance: MESALAMINE
     Indication: COLITIS ULCERATIVE
     Dosage: 4 G, 1X/DAY:QD (THERAPY DURATION: 2555. DAYS)
     Route: 048

REACTIONS (6)
  - Diarrhoea [Recovered/Resolved]
  - Haematochezia [Recovered/Resolved]
  - Anal incontinence [Recovered/Resolved]
  - Defaecation urgency [Recovered/Resolved]
  - Product use in unapproved indication [Recovered/Resolved]
  - Overdose [Recovered/Resolved]
